FAERS Safety Report 23055434 (Version 1)
Quarter: 2023Q4

REPORT INFORMATION
  Report Type: Spontaneous
  Country: US (occurrence: None)
  Receive Date: 20231010
  Receipt Date: 20231010
  Transmission Date: 20240110
  Serious: Yes (Death, Hospitalization)
  Sender: FDA-Public Use
  Company Number: None

PATIENT
  Age: 63 Year
  Sex: Female

DRUGS (15)
  1. TADALAFIL [Suspect]
     Active Substance: TADALAFIL
     Indication: Pulmonary hypertension
     Dosage: FREQUENCY : DAILY;?
     Route: 048
     Dates: start: 20210211, end: 20230917
  2. AMBRISENTAN [Concomitant]
     Active Substance: AMBRISENTAN
  3. TORSEMIDE [Concomitant]
     Active Substance: TORSEMIDE
  4. SPIRONOLACTONE [Concomitant]
     Active Substance: SPIRONOLACTONE
  5. POTASSIUM CHLORIDE [Concomitant]
     Active Substance: POTASSIUM CHLORIDE
  6. METOPROLOL [Concomitant]
     Active Substance: METOPROLOL
  7. TRAZODONE [Concomitant]
     Active Substance: TRAZODONE HYDROCHLORIDE
  8. LORAZEPAM [Concomitant]
     Active Substance: LORAZEPAM
  9. LEVOTHYROXINE [Concomitant]
     Active Substance: LEVOTHYROXINE
  10. LACTULOSE [Concomitant]
     Active Substance: LACTULOSE
  11. COLCHICINE [Concomitant]
     Active Substance: COLCHICINE
  12. BUSPIRONE [Concomitant]
     Active Substance: BUSPIRONE HYDROCHLORIDE
  13. BUPROPION [Concomitant]
     Active Substance: BUPROPION
  14. ALLOPURINOL [Concomitant]
     Active Substance: ALLOPURINOL
  15. ACETAZOLAMIDE [Concomitant]
     Active Substance: ACETAZOLAMIDE

REACTIONS (4)
  - Hypervolaemia [None]
  - Cardiac failure congestive [None]
  - Therapy cessation [None]
  - Refusal of treatment by patient [None]

NARRATIVE: CASE EVENT DATE: 20230914
